FAERS Safety Report 13002855 (Version 1)
Quarter: 2016Q4

REPORT INFORMATION
  Report Type: Spontaneous
  Country: US (occurrence: US)
  Receive Date: 20161206
  Receipt Date: 20161206
  Transmission Date: 20170207
  Serious: No
  Sender: FDA-Public Use
  Company Number: US-JNJFOC-20161020192

PATIENT
  Sex: Female
  Weight: 79.38 kg

DRUGS (1)
  1. STELARA [Suspect]
     Active Substance: USTEKINUMAB
     Indication: PSORIASIS
     Dosage: 45 MG TO START ON WEEK 0, WEEK 4 AND THEN ON WEEK 12
     Route: 058
     Dates: start: 20161020

REACTIONS (2)
  - Incorrect dose administered [Unknown]
  - Psoriasis [Unknown]
